FAERS Safety Report 8710523 (Version 2)
Quarter: 2012Q4

REPORT INFORMATION
  Report Type: 
  Country: DE (occurrence: IN)
  Receive Date: 20120807
  Receipt Date: 20121120
  Transmission Date: 20130627
  Serious: Yes (Hospitalization, Other)
  Sender: FDA-Public Use
  Company Number: IN-SANOFI-AVENTIS-2012SA054371

PATIENT
  Age: 17 Year
  Sex: Male
  Weight: 65 kg

DRUGS (1)
  1. APIDRA [Suspect]
     Indication: TYPE 1 DIABETES MELLITUS
     Dosage: 8 units in morning, 10 units in afternoon, 4 units in evening and 10 units at night
     Route: 058
     Dates: start: 20120723, end: 20120730

REACTIONS (2)
  - Diabetic ketoacidosis [Recovering/Resolving]
  - Drug ineffective [Unknown]
